FAERS Safety Report 10027667 (Version 2)
Quarter: 2014Q1

REPORT INFORMATION
  Report Type: Report from Study
  Country: US (occurrence: US)
  Receive Date: 20140321
  Receipt Date: 20140321
  Transmission Date: 20141002
  Serious: Yes (Other)
  Sender: FDA-Public Use
  Company Number: PHEH2014US003218

PATIENT
  Age: 44 Year
  Sex: Female

DRUGS (13)
  1. GILENYA [Suspect]
     Indication: MULTIPLE SCLEROSIS
     Dosage: 0.5 MG, QD
     Route: 048
     Dates: start: 2012, end: 2013
  2. AMITRIPTYLINE [Concomitant]
     Route: 048
  3. CITALOPRAM [Concomitant]
  4. LANTUS [Concomitant]
  5. LITHIUM [Concomitant]
  6. METFORMIN [Concomitant]
  7. NEXIUM [Concomitant]
  8. NOVOLET [Concomitant]
  9. SYNTHROID [Concomitant]
  10. VICTOZA [Concomitant]
  11. ZANAFLEX [Concomitant]
     Indication: MUSCLE SPASMS
     Dosage: 4 MG, TID
     Route: 048
     Dates: start: 201310
  12. XANAX [Concomitant]
  13. OXYBUTYNIN [Concomitant]
     Indication: BLADDER SPASM
     Dosage: 5 MG, TID
     Route: 048
     Dates: start: 20130715

REACTIONS (2)
  - Diabetic retinal oedema [Unknown]
  - Visual acuity reduced [Unknown]
